FAERS Safety Report 22539251 (Version 1)
Quarter: 2023Q2

REPORT INFORMATION
  Report Type: Spontaneous
  Country: GB (occurrence: GB)
  Receive Date: 20230609
  Receipt Date: 20230609
  Transmission Date: 20230722
  Serious: Yes (Other)
  Sender: FDA-Public Use
  Company Number: GB-PBT-007673

PATIENT

DRUGS (6)
  1. TACROLIMUS [Interacting]
     Active Substance: TACROLIMUS
     Indication: Prophylaxis against transplant rejection
     Dosage: 2 + 1.5
     Route: 065
  2. TEZACAFTOR [Interacting]
     Active Substance: TEZACAFTOR
     Indication: Cystic fibrosis
     Route: 065
  3. IVACAFTOR [Interacting]
     Active Substance: IVACAFTOR
     Indication: Cystic fibrosis
     Route: 065
  4. TACROLIMUS [Interacting]
     Active Substance: TACROLIMUS
     Indication: Prophylaxis against transplant rejection
     Dosage: 2.5 + 2.5
     Route: 065
  5. TEZACAFTOR [Interacting]
     Active Substance: TEZACAFTOR
     Indication: Cystic fibrosis
     Dosage: REDUCED DOSE
     Route: 065
  6. IVACAFTOR [Interacting]
     Active Substance: IVACAFTOR
     Indication: Cystic fibrosis
     Dosage: REDUCED DOSE
     Route: 065

REACTIONS (2)
  - Immune-mediated hepatic disorder [Recovered/Resolved]
  - Drug interaction [Unknown]
